FAERS Safety Report 8513850 (Version 2)
Quarter: 2019Q4

REPORT INFORMATION
  Report Type: Spontaneous
  Country: US (occurrence: US)
  Receive Date: 20120416
  Receipt Date: 20191219
  Transmission Date: 20200122
  Serious: Yes (Hospitalization)
  Sender: FDA-Public Use
  Company Number: US-UCBSA-054483

PATIENT
  Age: 27 Year
  Sex: Male
  Weight: 93.9 kg

DRUGS (17)
  1. FISH OIL [Concomitant]
     Active Substance: FISH OIL
  2. PREDNISONE. [Concomitant]
     Active Substance: PREDNISONE
     Route: 048
     Dates: start: 201003
  3. PREDNISONE. [Concomitant]
     Active Substance: PREDNISONE
     Dosage: DAILY DOSE:10 MG
  4. CIPRO [Concomitant]
     Active Substance: CIPROFLOXACIN HYDROCHLORIDE
     Dosage: 500 MG, 2X/DAY (BID)
     Route: 048
  5. AZATHIOPRINE. [Concomitant]
     Active Substance: AZATHIOPRINE
     Dates: start: 2005
  6. CIMZIA [Suspect]
     Active Substance: CERTOLIZUMAB PEGOL
     Indication: CROHN^S DISEASE
     Dosage: 400 MG, MONTHLY (QM)
     Route: 058
     Dates: start: 201102, end: 2012
  7. PENTASA [Concomitant]
     Active Substance: MESALAMINE
     Dates: start: 201003
  8. PENTASA [Concomitant]
     Active Substance: MESALAMINE
  9. METRONIDAZOLE. [Concomitant]
     Active Substance: METRONIDAZOLE
     Dates: start: 201003
  10. CIMZIA [Suspect]
     Active Substance: CERTOLIZUMAB PEGOL
     Dosage: INDUCTION DOSE
     Route: 058
     Dates: start: 201101, end: 201102
  11. PREDNISONE. [Concomitant]
     Active Substance: PREDNISONE
     Dosage: DOSE TAPERED
     Dates: end: 2007
  12. PREDNISONE. [Concomitant]
     Active Substance: PREDNISONE
     Dates: start: 2007
  13. REMICADE [Concomitant]
     Active Substance: INFLIXIMAB
     Dates: start: 2005
  14. CORTICOSTEROIDS [Concomitant]
     Active Substance: CORTICOSTEROID NOS
  15. VITAMIN D [Concomitant]
     Active Substance: VITAMIN D NOS
  16. TUMS [Concomitant]
     Active Substance: CALCIUM CARBONATE
  17. FLAGYL [Concomitant]
     Active Substance: METRONIDAZOLE\METRONIDAZOLE HYDROCHLORIDE
     Dosage: 250 MG, 3X/DAY (TID)
     Route: 048

REACTIONS (5)
  - Dermatitis psoriasiform [Unknown]
  - Surgery [Not Recovered/Not Resolved]
  - Perirectal abscess [Unknown]
  - Pyrexia [Unknown]
  - Hypertension [Unknown]

NARRATIVE: CASE EVENT DATE: 20120203
